FAERS Safety Report 19007715 (Version 2)
Quarter: 2021Q2

REPORT INFORMATION
  Report Type: Spontaneous
  Country: US (occurrence: US)
  Receive Date: 20210315
  Receipt Date: 20210412
  Transmission Date: 20210717
  Serious: No
  Sender: FDA-Public Use
  Company Number: US-AMGEN INC.-USASP2021037205

PATIENT
  Age: 46 Year
  Sex: Female

DRUGS (3)
  1. SUMATRIPTAN. [Concomitant]
     Active Substance: SUMATRIPTAN
     Indication: CLUSTER HEADACHE
     Dosage: UNK (HALF PILL AND 30 MIN LATER 2ND HALF PILL)
  2. AIMOVIG [Suspect]
     Active Substance: ERENUMAB-AOOE
     Indication: MIGRAINE PROPHYLAXIS
     Dosage: 140 MILLIGRAM
     Route: 065
     Dates: start: 2020
  3. ESGIC [Concomitant]
     Active Substance: ACETAMINOPHEN\BUTALBITAL\CAFFEINE
     Indication: ILLNESS
     Dosage: UNK UNK, AS NECESSARY
     Route: 065

REACTIONS (12)
  - Therapeutic response shortened [Unknown]
  - Injection site pruritus [Unknown]
  - Vitamin D deficiency [Not Recovered/Not Resolved]
  - Injection site discolouration [Unknown]
  - Pruritus [Not Recovered/Not Resolved]
  - Colitis [Not Recovered/Not Resolved]
  - Wrong technique in product usage process [Unknown]
  - Dyspnoea [Not Recovered/Not Resolved]
  - Tuberculin test positive [Unknown]
  - Injection site pain [Unknown]
  - Skin exfoliation [Not Recovered/Not Resolved]
  - Illness [Unknown]

NARRATIVE: CASE EVENT DATE: 2020
